FAERS Safety Report 9261644 (Version 2)
Quarter: 2013Q2

REPORT INFORMATION
  Report Type: Report from Study
  Country: ES (occurrence: ES)
  Receive Date: 20130429
  Receipt Date: 20130528
  Transmission Date: 20140414
  Serious: Yes (Life-Threatening, Hospitalization, Other)
  Sender: FDA-Public Use
  Company Number: ES-ASTRAZENECA-2013SE28612

PATIENT
  Age: 20579 Day
  Sex: Female

DRUGS (17)
  1. AZD6140 [Suspect]
     Indication: ACUTE MYOCARDIAL INFARCTION
     Dosage: IN-HOSP TICAGRELOR
     Route: 048
     Dates: start: 20130303, end: 20130303
  2. AZD6140 [Suspect]
     Indication: ACUTE MYOCARDIAL INFARCTION
     Dosage: OPEN LABEL
     Route: 048
     Dates: start: 20130303, end: 20130402
  3. BIVALIDURINA [Concomitant]
     Dosage: 1.750 MG/KG/HOUR
     Route: 042
     Dates: start: 20130303, end: 20130303
  4. BIVALIDURINA [Concomitant]
     Dosage: 0.750 MG/KG
     Route: 042
     Dates: start: 20130303, end: 20130303
  5. ENOXAPARINA [Concomitant]
     Route: 058
     Dates: start: 20130303, end: 20130306
  6. AAS [Concomitant]
     Route: 048
     Dates: start: 20130303, end: 20130303
  7. AAS [Concomitant]
     Route: 048
     Dates: start: 20130304
  8. FUROSEMIDA [Concomitant]
     Route: 042
     Dates: start: 20130303, end: 20130306
  9. NITROGLICERINA [Concomitant]
     Route: 042
     Dates: start: 20130303, end: 20130303
  10. AMIODARONA [Concomitant]
     Route: 042
     Dates: start: 20130303, end: 20130304
  11. CLORAZEPATO DIPOTASICO [Concomitant]
     Route: 048
     Dates: start: 20130303, end: 20130306
  12. INSULIN [Concomitant]
     Route: 042
     Dates: start: 20130303, end: 20130304
  13. MORPHINE [Concomitant]
     Route: 042
     Dates: start: 20130303, end: 20130303
  14. RANITIDINE [Concomitant]
     Route: 048
     Dates: start: 20130303, end: 20130306
  15. PRIMPERAN [Concomitant]
     Route: 042
     Dates: start: 20130303, end: 20130303
  16. MIDAZOLAM [Concomitant]
     Route: 042
     Dates: start: 20130303, end: 20130303
  17. FENTANIL [Concomitant]
     Route: 042
     Dates: start: 20130303, end: 20130303

REACTIONS (3)
  - Urinary tract infection [Recovered/Resolved]
  - Cardiac failure [Recovered/Resolved]
  - Ventricular fibrillation [Recovered/Resolved]
